APPROVED DRUG PRODUCT: CLOTRIMAZOLE AND BETAMETHASONE DIPROPIONATE
Active Ingredient: BETAMETHASONE DIPROPIONATE; CLOTRIMAZOLE
Strength: EQ 0.05% BASE;1%
Dosage Form/Route: CREAM;TOPICAL
Application: A202894 | Product #001
Applicant: GLENMARK SPECIALTY SA
Approved: Oct 30, 2015 | RLD: No | RS: No | Type: DISCN